FAERS Safety Report 12528532 (Version 1)
Quarter: 2016Q3

REPORT INFORMATION
  Report Type: Spontaneous
  Country: US (occurrence: US)
  Receive Date: 20160705
  Receipt Date: 20160705
  Transmission Date: 20161109
  Serious: No
  Sender: FDA-Public Use
  Company Number: US-MISSION PHARMACAL COMPANY-1054673

PATIENT
  Age: 49 Year
  Sex: Male

DRUGS (3)
  1. THIOLA [Suspect]
     Active Substance: TIOPRONIN
     Route: 065
     Dates: start: 20151031, end: 20160617
  2. THIOLA [Suspect]
     Active Substance: TIOPRONIN
     Indication: HOMOCYSTINURIA
     Route: 065
     Dates: start: 20151031, end: 20160617
  3. TYLENOL [Concomitant]
     Active Substance: ACETAMINOPHEN
     Route: 065
     Dates: start: 20160616, end: 20160616

REACTIONS (8)
  - Genital blister [Recovering/Resolving]
  - Dry skin [Recovering/Resolving]
  - Pain [Recovering/Resolving]
  - Arthralgia [Recovering/Resolving]
  - Headache [Recovering/Resolving]
  - Drug ineffective [Unknown]
  - Myalgia [Recovering/Resolving]
  - Lacrimation increased [Recovering/Resolving]
